FAERS Safety Report 6986459-4 (Version None)
Quarter: 2010Q3

REPORT INFORMATION
  Report Type: 
  Country: None (occurrence: None)
  Receive Date: 20100915
  Receipt Date: 20090727
  Transmission Date: 20110219
  Serious: No
  Sender: FDA-Public Use
  Company Number: US-WYE-H09924909

PATIENT
  Sex: Female
  Weight: 56.75 kg

DRUGS (2)
  1. PRISTIQ [Suspect]
     Indication: MAJOR DEPRESSION
     Route: 048
     Dates: start: 20090109, end: 20090216
  2. PRISTIQ [Suspect]
     Route: 048
     Dates: start: 20090401, end: 20090101

REACTIONS (1)
  - TRISMUS [None]
